FAERS Safety Report 5719676-1 (Version None)
Quarter: 2008Q2

REPORT INFORMATION
  Report Type: 
  Country: None (occurrence: None)
  Receive Date: 20080428
  Receipt Date: 20080421
  Transmission Date: 20081010
  Serious: Yes (Hospitalization, Other)
  Sender: FDA-Public Use
  Company Number: PHHY2008SE06203

PATIENT
  Age: 30 Year
  Sex: Male

DRUGS (4)
  1. TEGRETOL [Suspect]
     Indication: EPILEPSY
     Dosage: 200 MG, BID
     Dates: start: 20020101
  2. TEGRETOL [Suspect]
     Dosage: 600 MG, BID
     Dates: start: 20050101
  3. OXASCAND [Concomitant]
  4. TEGRETOL [Suspect]
     Indication: EPILEPSY
     Dates: start: 20011101

REACTIONS (8)
  - ANXIETY [None]
  - CONVULSION [None]
  - DEPRESSED LEVEL OF CONSCIOUSNESS [None]
  - DIARRHOEA [None]
  - DRUG LEVEL DECREASED [None]
  - FATIGUE [None]
  - SPEECH DISORDER [None]
  - VOMITING [None]
